FAERS Safety Report 6649488-6 (Version None)
Quarter: 2010Q1

REPORT INFORMATION
  Report Type: 
  Country: None (occurrence: None)
  Receive Date: 20100324
  Receipt Date: 20100318
  Transmission Date: 20100710
  Serious: Yes (Death)
  Sender: FDA-Public Use
  Company Number: US-GILEAD-2010-0027953

PATIENT
  Sex: Female

DRUGS (13)
  1. LETAIRIS [Suspect]
     Indication: PULMONARY ARTERIAL HYPERTENSION
     Route: 048
     Dates: start: 20090129
  2. FUROSEMIDE [Concomitant]
  3. ATENOLOL [Concomitant]
  4. LORAZEPAM [Concomitant]
  5. ALBUTEROL [Concomitant]
  6. SPIRIVA [Concomitant]
  7. NASONEX [Concomitant]
  8. LANTUS [Concomitant]
  9. SINGULAIR [Concomitant]
  10. VASOTEC [Concomitant]
  11. ASPIRIN [Concomitant]
  12. COLCHICINE [Concomitant]
  13. LIPITOR [Concomitant]

REACTIONS (1)
  - DEATH [None]
